FAERS Safety Report 21686655 (Version 1)
Quarter: 2022Q4

REPORT INFORMATION
  Report Type: Spontaneous
  Country: US (occurrence: US)
  Receive Date: 20221206
  Receipt Date: 20221206
  Transmission Date: 20230112
  Serious: Yes (Hospitalization, Other)
  Sender: FDA-Public Use
  Company Number: US-HALEON-USCH2022GSK046895

PATIENT

DRUGS (5)
  1. IBUPROFEN [Suspect]
     Active Substance: IBUPROFEN
     Indication: Headache
     Dosage: 800 MG (THREE TIMES MOST DAYS FOR LAST TWO WEEKS)
  2. IBUPROFEN [Suspect]
     Active Substance: IBUPROFEN
     Indication: COVID-19
  3. ESCITALOPRAM [Concomitant]
     Active Substance: ESCITALOPRAM OXALATE
     Indication: Depression
     Dosage: UNK
  4. PROPRANOLOL [Concomitant]
     Active Substance: PROPRANOLOL HYDROCHLORIDE
     Indication: Depression
     Dosage: UNK
  5. TRAZODONE [Concomitant]
     Active Substance: TRAZODONE HYDROCHLORIDE
     Indication: Depression
     Dosage: UNK

REACTIONS (7)
  - Gastrointestinal haemorrhage [Unknown]
  - Haematuria [Unknown]
  - Melaena [Unknown]
  - Rash macular [Unknown]
  - Contusion [Unknown]
  - Petechiae [Unknown]
  - Ecchymosis [Unknown]
